FAERS Safety Report 12217662 (Version 2)
Quarter: 2016Q2

REPORT INFORMATION
  Report Type: Spontaneous
  Country: JP (occurrence: JP)
  Receive Date: 20160329
  Receipt Date: 20160412
  Transmission Date: 20160815
  Serious: Yes (Hospitalization, Other)
  Sender: FDA-Public Use
  Company Number: JP-ABBVIE-16P-087-1591384-00

PATIENT
  Age: 37 Year
  Sex: Female

DRUGS (6)
  1. TASMOLIN [Suspect]
     Active Substance: BIPERIDEN
     Indication: PRODUCT USED FOR UNKNOWN INDICATION
     Route: 065
  2. BROMOCRIPTINE MESILATE [Concomitant]
     Active Substance: BROMOCRIPTINE
     Indication: PRODUCT USED FOR UNKNOWN INDICATION
  3. DEPAKENE [Suspect]
     Active Substance: VALPROIC ACID
     Indication: PRODUCT USED FOR UNKNOWN INDICATION
     Route: 048
  4. ZOTEPINE [Concomitant]
     Active Substance: ZOTEPINE
     Indication: PRODUCT USED FOR UNKNOWN INDICATION
  5. RISPERIDONE. [Concomitant]
     Active Substance: RISPERIDONE
     Indication: PRODUCT USED FOR UNKNOWN INDICATION
  6. FLUNITRAZEPAM [Concomitant]
     Active Substance: FLUNITRAZEPAM
     Indication: PRODUCT USED FOR UNKNOWN INDICATION

REACTIONS (13)
  - Abdominal distension [Unknown]
  - Portal venous gas [Unknown]
  - Blood creatine phosphokinase increased [Unknown]
  - Disseminated intravascular coagulation [Unknown]
  - Gastrointestinal necrosis [Unknown]
  - Laryngeal oedema [Unknown]
  - Pyrexia [Unknown]
  - Ileus paralytic [Unknown]
  - Sepsis [Unknown]
  - Neuroleptic malignant syndrome [Unknown]
  - Intestinal dilatation [Unknown]
  - Inflammation [Unknown]
  - Tachycardia [Unknown]
